FAERS Safety Report 5590866-4 (Version None)
Quarter: 2007Q4

REPORT INFORMATION
  Report Type: 
  Country: None (occurrence: None)
  Receive Date: 20071214
  Receipt Date: 20070215
  Transmission Date: 20080405
  Serious: Yes (Hospitalization)
  Sender: FDA-Public Use
  Company Number: S07-USA-00723-01

PATIENT
  Age: 75 Year
  Sex: Female

DRUGS (1)
  1. NAMENDA [Suspect]
     Indication: DEMENTIA ALZHEIMER'S TYPE

REACTIONS (1)
  - SYNCOPE [None]
